FAERS Safety Report 5356022-X (Version None)
Quarter: 2007Q2

REPORT INFORMATION
  Report Type: 
  Country: None (occurrence: None)
  Receive Date: 20070530
  Receipt Date: 20070126
  Transmission Date: 20071010
  Serious: Yes (Other)
  Sender: FDA-Public Use
  Company Number: US200701005991

PATIENT

DRUGS (1)
  1. ZYPREXA [Suspect]

REACTIONS (3)
  - CEREBROVASCULAR ACCIDENT [None]
  - DIABETES MELLITUS INSULIN-DEPENDENT [None]
  - PANCREATITIS CHRONIC [None]
